FAERS Safety Report 5917868-X (Version None)
Quarter: 2008Q4

REPORT INFORMATION
  Report Type: 
  Country: None (occurrence: None)
  Receive Date: 20081009
  Receipt Date: 20080926
  Transmission Date: 20090506
  Serious: Yes (Other)
  Sender: FDA-Public Use
  Company Number: GXKR2007GB00664

PATIENT
  Age: 28 Year
  Sex: Female

DRUGS (6)
  1. ERYTHROMYCIN [Suspect]
     Indication: ROSACEA
     Dosage: 500 MG, TID, ORAL
     Route: 048
  2. PREDNISOLONE [Suspect]
     Indication: ROSACEA
     Dosage: 35 MG, QD; ORAL; 20 MG, QD
     Route: 048
  3. INSULIN (INSULIN) [Concomitant]
  4. MIFEPRISTONE (MIFEPRISTONE) [Concomitant]
  5. MISOPROSTOL [Concomitant]
  6. DINOPROSTONE (DINOPROSTONE) [Concomitant]

REACTIONS (5)
  - CAESAREAN SECTION [None]
  - DRUG EXPOSURE DURING PREGNANCY [None]
  - GESTATIONAL DIABETES [None]
  - OLIGOHYDRAMNIOS [None]
  - STILLBIRTH [None]
